FAERS Safety Report 5171446-1 (Version None)
Quarter: 2006Q4

REPORT INFORMATION
  Report Type: 
  Country: None (occurrence: None)
  Receive Date: 20061213
  Receipt Date: 20061205
  Transmission Date: 20070319
  Serious: Yes (Hospitalization)
  Sender: FDA-Public Use
  Company Number: US-AVENTIS-200619837US

PATIENT
  Sex: Male
  Weight: 66 kg

DRUGS (2)
  1. LANTUS [Suspect]
     Indication: DIABETES MELLITUS INSULIN-DEPENDENT
  2. HUMALOG [Concomitant]
     Dosage: DOSE: SLIDING SCALE

REACTIONS (6)
  - DIABETIC KETOACIDOSIS [None]
  - DYSPEPSIA [None]
  - HYPERGLYCAEMIA [None]
  - TREATMENT NONCOMPLIANCE [None]
  - TREMOR [None]
  - VOMITING [None]
